FAERS Safety Report 15976697 (Version 2)
Quarter: 2019Q1

REPORT INFORMATION
  Report Type: Spontaneous
  Country: US (occurrence: US)
  Receive Date: 20190218
  Receipt Date: 20190221
  Transmission Date: 20190418
  Serious: Yes (Death, Life-Threatening, Hospitalization)
  Sender: FDA-Public Use
  Company Number: US-ASTRAZENECA-2019SE26498

PATIENT
  Age: 92 Day
  Sex: Male
  Weight: 2.9 kg

DRUGS (3)
  1. SYNAGIS [Suspect]
     Active Substance: PALIVIZUMAB
     Dosage: UNKNOWN DOSE
     Route: 030
  2. MULTIVITAMIN [Concomitant]
     Active Substance: VITAMINS
     Dosage: UNKNOWN
     Route: 065
  3. IRON [Concomitant]
     Active Substance: IRON
     Dosage: UNKNOWN
     Route: 065

REACTIONS (4)
  - Death [Fatal]
  - Pneumonia [Unknown]
  - Capillary leak syndrome [Unknown]
  - Septic shock [Unknown]

NARRATIVE: CASE EVENT DATE: 20190213
